FAERS Safety Report 10958913 (Version 1)
Quarter: 2015Q1

REPORT INFORMATION
  Report Type: Spontaneous
  Country: CA (occurrence: CA)
  Receive Date: 20150327
  Receipt Date: 20150327
  Transmission Date: 20150721
  Serious: Yes (Other)
  Sender: FDA-Public Use
  Company Number: CA-TAKEDA-2015TJP004981

PATIENT
  Sex: Male

DRUGS (2)
  1. VORTIOXETINE [Suspect]
     Active Substance: VORTIOXETINE
     Indication: MAJOR DEPRESSION
     Dosage: 10 MG, QD
     Route: 048
  2. VORTIOXETINE [Suspect]
     Active Substance: VORTIOXETINE
     Dosage: 20 MG, QD
     Route: 048

REACTIONS (1)
  - Suicidal behaviour [Unknown]
